FAERS Safety Report 8489978-7 (Version None)
Quarter: 2012Q2

REPORT INFORMATION
  Report Type: 
  Country: None (occurrence: None)
  Receive Date: 20120626
  Receipt Date: 20120615
  Transmission Date: 20120825
  Serious: Yes (Other)
  Sender: FDA-Public Use
  Company Number: DSA_57977_2012

PATIENT

DRUGS (4)
  1. THERAPEUTIC RADIOPHARMACEUTICALS [Suspect]
     Indication: OESOPHAGEAL CARCINOMA
     Dosage: (DAILY)
  2. FLUOROURACIL [Suspect]
     Indication: OESOPHAGEAL CARCINOMA
     Dosage: (1000 MG/M2 (INTRAVENOUS (NOT OTHERWISE SPECIFIED))
     Route: 042
  3. CISPLATIN [Suspect]
     Indication: OESOPHAGEAL CARCINOMA
     Dosage: (75 MG/M2)
  4. ALL OTHER THERAPEUTIC PRODUCTS (ALL OTHER THERAPEUTIC PRODUCTS) [Suspect]
     Indication: OESOPHAGEAL CARCINOMA
     Dosage: (WEEKLY INTRATUMOR)
     Route: 036

REACTIONS (1)
  - PULMONARY EMBOLISM [None]
